FAERS Safety Report 23785938 (Version 1)
Quarter: 2024Q2

REPORT INFORMATION
  Report Type: Spontaneous
  Country: US (occurrence: US)
  Receive Date: 20240426
  Receipt Date: 20240426
  Transmission Date: 20240716
  Serious: Yes (Hospitalization, Other)
  Sender: FDA-Public Use
  Company Number: US-SA-SAC20240424000555

PATIENT
  Age: 60 Year
  Sex: Female
  Weight: 79.37 kg

DRUGS (1)
  1. DUPIXENT [Suspect]
     Active Substance: DUPILUMAB
     Indication: Nasal polyps
     Dosage: 300 MG, QOW
     Route: 058
     Dates: start: 202305, end: 202308

REACTIONS (4)
  - Pneumonia [Unknown]
  - Asthma [Unknown]
  - Anosmia [Unknown]
  - Illness [Unknown]

NARRATIVE: CASE EVENT DATE: 20231001
